FAERS Safety Report 5359447-1 (Version None)
Quarter: 2007Q2

REPORT INFORMATION
  Report Type: 
  Country: None (occurrence: None)
  Receive Date: 20070615
  Receipt Date: 20070605
  Transmission Date: 20071010
  Serious: Yes (Other)
  Sender: FDA-Public Use
  Company Number: CL-PFIZER INC-2007042087

PATIENT
  Sex: Male
  Weight: 89 kg

DRUGS (6)
  1. PREGABALIN [Suspect]
     Indication: POLYNEUROPATHY
     Route: 048
     Dates: start: 20070501, end: 20070524
  2. GABAPENTIN [Suspect]
     Dates: start: 20070501
  3. ALCOHOL [Suspect]
  4. ACESISTEM [Concomitant]
     Route: 048
  5. ATORVASTATIN CALCIUM [Concomitant]
     Route: 048
  6. VITAMIN B 1-6-12 [Concomitant]

REACTIONS (1)
  - TACHYCARDIA [None]
